FAERS Safety Report 6588736-8 (Version None)
Quarter: 2010Q1

REPORT INFORMATION
  Report Type: 
  Country: None (occurrence: None)
  Receive Date: 20100218
  Receipt Date: 20100209
  Transmission Date: 20100710
  Serious: Yes (Hospitalization, Other)
  Sender: FDA-Public Use
  Company Number: PHHY2010BR07527

PATIENT
  Age: 54 Year
  Sex: Male
  Weight: 115 kg

DRUGS (4)
  1. GALVUS MET [Suspect]
     Indication: DIABETES MELLITUS
     Dosage: 2 TABLETS DAILY
     Dates: start: 20080501
  2. NOVOLIN N [Concomitant]
     Dosage: UNK
     Dates: start: 20081201
  3. SIBUTRAMINE [Concomitant]
     Dosage: UNK
     Dates: start: 20081001
  4. CIPROFIBRATE [Concomitant]

REACTIONS (3)
  - ABDOMINAL PAIN [None]
  - LIPASE INCREASED [None]
  - WEIGHT DECREASED [None]
